FAERS Safety Report 4771189-X (Version None)
Quarter: 2005Q3

REPORT INFORMATION
  Report Type: 
  Country: None (occurrence: None)
  Receive Date: 20050912
  Receipt Date: 20050518
  Transmission Date: 20060218
  Serious: Yes (Other)
  Sender: FDA-Public Use
  Company Number: M04-341-129

PATIENT
  Age: 79 Year
  Sex: Male
  Weight: 95 kg

DRUGS (4)
  1. VELCADE [Suspect]
     Indication: MULTIPLE MYELOMA
     Dosage: 2.50 MG, INTRAVENOUS; SEE IMAGE
     Route: 042
     Dates: start: 20031106, end: 20040301
  2. VELCADE [Suspect]
     Indication: MULTIPLE MYELOMA
     Dosage: 2.50 MG, INTRAVENOUS; SEE IMAGE
     Route: 042
     Dates: start: 20050211, end: 20050221
  3. ZOMETA [Concomitant]
  4. AREDIA [Concomitant]

REACTIONS (2)
  - NEUROPATHY PERIPHERAL [None]
  - PAIN IN EXTREMITY [None]
